FAERS Safety Report 14600599 (Version 6)
Quarter: 2018Q2

REPORT INFORMATION
  Report Type: Report from Study
  Country: CA (occurrence: CA)
  Receive Date: 20180305
  Receipt Date: 20180618
  Transmission Date: 20180711
  Serious: Yes (Other)
  Sender: FDA-Public Use
  Company Number: CA-BRISTOL-MYERS SQUIBB COMPANY-BMS-2017-069817

PATIENT
  Age: 75 Year
  Sex: Female

DRUGS (1)
  1. ABATACEPT [Suspect]
     Active Substance: ABATACEPT
     Indication: RHEUMATOID ARTHRITIS
     Dosage: 750 MG, Q4WK
     Route: 042
     Dates: start: 20170719

REACTIONS (23)
  - Productive cough [Unknown]
  - Adverse event [Unknown]
  - Fatigue [Unknown]
  - Hypokinesia [Unknown]
  - Swelling [Unknown]
  - Psoriasis [Unknown]
  - Impaired healing [Unknown]
  - Infusion site oedema [Not Recovered/Not Resolved]
  - Headache [Recovered/Resolved]
  - Dry skin [Unknown]
  - Pulmonary congestion [Unknown]
  - Infusion site extravasation [Recovered/Resolved]
  - Pain [Unknown]
  - Nodule [Unknown]
  - Rash erythematous [Unknown]
  - Erythema [Not Recovered/Not Resolved]
  - Dyspnoea [Unknown]
  - Mass [Unknown]
  - Skin disorder [Recovering/Resolving]
  - Hypertension [Unknown]
  - Aphonia [Unknown]
  - Asthenia [Unknown]
  - Rash macular [Recovering/Resolving]

NARRATIVE: CASE EVENT DATE: 20170801
